FAERS Safety Report 7551373-2 (Version None)
Quarter: 2011Q2

REPORT INFORMATION
  Report Type: 
  Country: None (occurrence: None)
  Receive Date: 20110616
  Receipt Date: 20110121
  Transmission Date: 20111010
  Serious: Yes (Hospitalization)
  Sender: FDA-Public Use
  Company Number: JP-ROCHE-731719

PATIENT
  Sex: Male

DRUGS (6)
  1. VALGANCICLOVIR [Suspect]
     Indication: CYTOMEGALOVIRUS INFECTION
     Route: 048
     Dates: start: 20081126, end: 20090819
  2. EFAVIRENZ [Concomitant]
     Route: 048
     Dates: start: 20090121, end: 20100121
  3. BENAMBAX [Concomitant]
     Route: 041
     Dates: start: 20081029, end: 20081128
  4. BENAMBAX [Concomitant]
     Route: 041
     Dates: start: 20081129, end: 20081209
  5. GANCICLOVIR SODIUM [Suspect]
     Indication: CYTOMEGALOVIRUS INFECTION
     Route: 041
     Dates: start: 20081025, end: 20081125
  6. TRUVADA [Concomitant]
     Route: 048
     Dates: start: 20090121, end: 20100331

REACTIONS (2)
  - RENAL IMPAIRMENT [None]
  - PNEUMOTHORAX [None]
